FAERS Safety Report 25974278 (Version 1)
Quarter: 2025Q4

REPORT INFORMATION
  Report Type: Spontaneous
  Country: EU (occurrence: EU)
  Receive Date: 20251029
  Receipt Date: 20251029
  Transmission Date: 20260117
  Serious: Yes (Other)
  Sender: AUROBINDO
  Company Number: EU-SANDOZ-SDZ2025PL073911

PATIENT
  Age: 79 Year
  Sex: Female

DRUGS (9)
  1. METOPROLOL [Suspect]
     Active Substance: METOPROLOL
     Indication: Chronic myeloid leukaemia
     Dosage: 25 MILLIGRAM, TWO TIMES A DAY
     Route: 065
  2. IMATINIB [Suspect]
     Active Substance: IMATINIB
     Indication: Product used for unknown indication
     Dosage: 400 MILLIGRAM, ONCE A DAY
     Route: 065
  3. ESCITALOPRAM [Suspect]
     Active Substance: ESCITALOPRAM OXALATE
     Indication: Chronic myeloid leukaemia
     Dosage: 10 MILLIGRAM, TWO TIMES A DAY (1X 1)
     Route: 065
  4. BUDESONIDE [Suspect]
     Active Substance: BUDESONIDE
     Indication: Chronic myeloid leukaemia
     Dosage: 3 MILLIGRAM, TWO TIMES A DAY
     Route: 065
  5. APIXABAN [Suspect]
     Active Substance: APIXABAN
     Indication: Chronic myeloid leukaemia
     Dosage: 5 MILLIGRAM
     Route: 065
  6. DONEPEZIL [Suspect]
     Active Substance: DONEPEZIL
     Indication: Chronic myeloid leukaemia
     Dosage: 5 MILLIGRAM, ONCE A DAY (IN EVENING)
     Route: 065
  7. PERINDOPRIL [Suspect]
     Active Substance: PERINDOPRIL
     Indication: Chronic myeloid leukaemia
     Dosage: 5 MILLIGRAM
     Route: 065
  8. ASCIMINIB [Suspect]
     Active Substance: ASCIMINIB
     Indication: Chronic myeloid leukaemia
     Dosage: 40 MILLIGRAM
     Route: 065
     Dates: start: 202411
  9. MESALAMINE [Suspect]
     Active Substance: MESALAMINE
     Indication: Chronic myeloid leukaemia
     Dosage: 500 MILLIGRAM
     Route: 065

REACTIONS (7)
  - Leukocytosis [Not Recovered/Not Resolved]
  - Chronic myeloid leukaemia [Unknown]
  - Dementia [Unknown]
  - Pulmonary embolism [Unknown]
  - Pleural effusion [Unknown]
  - Depressive symptom [Unknown]
  - Unevaluable event [Unknown]
